FAERS Safety Report 8258424-0 (Version None)
Quarter: 2012Q1

REPORT INFORMATION
  Report Type: 
  Country: None (occurrence: None)
  Receive Date: 20120322
  Receipt Date: 20111228
  Transmission Date: 20120608
  Serious: Yes (Hospitalization)
  Sender: FDA-Public Use
  Company Number: UTC-013984

PATIENT
  Age: 66 Year
  Sex: Female
  Weight: 136.3 kg

DRUGS (3)
  1. COUMADIN [Concomitant]
  2. TYVASO [Suspect]
     Indication: COR PULMONALE CHRONIC
     Dosage: 216 MCG (54 MCG, 4 IN 1 D),INHALATION
     Route: 055
     Dates: start: 20111111
  3. DIURETICS (DIURETICS) [Concomitant]

REACTIONS (2)
  - COLITIS [None]
  - DRUG DOSE OMISSION [None]
